FAERS Safety Report 11882048 (Version 1)
Quarter: 2015Q4

REPORT INFORMATION
  Report Type: Spontaneous
  Country: US (occurrence: None)
  Receive Date: 20151230
  Receipt Date: 20151230
  Transmission Date: 20160305
  Serious: Yes (Life-Threatening, Hospitalization)
  Sender: FDA-Public Use
  Company Number: None

PATIENT
  Age: 51 Year
  Sex: Female
  Weight: 79.83 kg

DRUGS (6)
  1. TYLENOL [Concomitant]
     Active Substance: ACETAMINOPHEN
  2. WARFARIN BLOOD THINNING [Suspect]
     Active Substance: WARFARIN
     Indication: THROMBOSIS
     Dates: start: 2009, end: 2011
  3. FUROSEMIDE. [Concomitant]
     Active Substance: FUROSEMIDE
  4. AMIODARONE [Concomitant]
     Active Substance: AMIODARONE
  5. PANTOPRAZOL [Concomitant]
     Active Substance: PANTOPRAZOLE SODIUM
  6. QUINOPRIL [Concomitant]

REACTIONS (2)
  - Mouth haemorrhage [None]
  - Epistaxis [None]

NARRATIVE: CASE EVENT DATE: 20090209
